FAERS Safety Report 9847454 (Version 1)
Quarter: 2014Q1

REPORT INFORMATION
  Report Type: Spontaneous
  Country: US (occurrence: US)
  Receive Date: 20140127
  Receipt Date: 20140127
  Transmission Date: 20141002
  Serious: Yes (Other)
  Sender: FDA-Public Use
  Company Number: US-TEVA-458397USA

PATIENT
  Sex: Female

DRUGS (1)
  1. PORTIA [Suspect]
     Dosage: 0.15 MG/0.03 MG
     Route: 048

REACTIONS (1)
  - Coeliac disease [Unknown]
